FAERS Safety Report 7478757-5 (Version None)
Quarter: 2011Q2

REPORT INFORMATION
  Report Type: 
  Country: None (occurrence: None)
  Receive Date: 20110513
  Receipt Date: 20110502
  Transmission Date: 20111010
  Serious: Yes (Other)
  Sender: FDA-Public Use
  Company Number: FR-JNJFOC-20110502718

PATIENT
  Age: 58 Year
  Sex: Male

DRUGS (1)
  1. KETOCONAZOLE [Suspect]
     Indication: SKIN DISORDER
     Route: 061

REACTIONS (3)
  - OFF LABEL USE [None]
  - THROAT IRRITATION [None]
  - INCORRECT ROUTE OF DRUG ADMINISTRATION [None]
